FAERS Safety Report 9126746 (Version 1)
Quarter: 2013Q1

REPORT INFORMATION
  Report Type: Spontaneous
  Country: US (occurrence: US)
  Receive Date: 20130122
  Receipt Date: 20130122
  Transmission Date: 20140127
  Serious: No
  Sender: FDA-Public Use
  Company Number: US-PFIZER INC-2013023218

PATIENT
  Age: 64 Year
  Sex: Female

DRUGS (1)
  1. ADVIL [Suspect]
     Indication: PAIN IN EXTREMITY
     Dosage: 200 MG, EVERY FOUR TO SIX HOURS AS NEEDED

REACTIONS (3)
  - Expired drug administered [Unknown]
  - Abdominal pain upper [Unknown]
  - Diarrhoea [Unknown]
